FAERS Safety Report 16943061 (Version 1)
Quarter: 2019Q4

REPORT INFORMATION
  Report Type: Report from Study
  Country: FR (occurrence: FR)
  Receive Date: 20191021
  Receipt Date: 20191021
  Transmission Date: 20200122
  Serious: Yes (Other)
  Sender: FDA-Public Use
  Company Number: PHHY2019FR228129

PATIENT
  Age: 18 Year
  Sex: Male
  Weight: 55 kg

DRUGS (3)
  1. CARDENSIEL [Concomitant]
     Active Substance: BISOPROLOL FUMARATE
     Indication: CARDIAC DYSFUNCTION
     Dosage: 1.25 MG, QD
     Route: 048
     Dates: start: 20181217
  2. RAMIPRIL. [Concomitant]
     Active Substance: RAMIPRIL
     Indication: CARDIAC DYSFUNCTION
     Dosage: 3.75 MG, QD
     Route: 048
     Dates: start: 20181217
  3. TISAGENLECLEUCEL. [Suspect]
     Active Substance: TISAGENLECLEUCEL
     Indication: LEUKAEMIA
     Dosage: UNK
     Route: 042
     Dates: start: 20190319

REACTIONS (1)
  - Neutropenia [Recovering/Resolving]

NARRATIVE: CASE EVENT DATE: 20190711
